FAERS Safety Report 21944846 (Version 1)
Quarter: 2023Q1

REPORT INFORMATION
  Report Type: Spontaneous
  Country: DE (occurrence: DE)
  Receive Date: 20230202
  Receipt Date: 20230202
  Transmission Date: 20230418
  Serious: Yes (Hospitalization, Other)
  Sender: FDA-Public Use
  Company Number: DE-JNJFOC-20221248479

PATIENT
  Age: 74 Year
  Sex: Female

DRUGS (17)
  1. ARIPIPRAZOLE [Suspect]
     Active Substance: ARIPIPRAZOLE
     Indication: Delusion
     Dosage: 5 MILLIGRAM
     Route: 048
     Dates: start: 20220101
  2. ARIPIPRAZOLE [Suspect]
     Active Substance: ARIPIPRAZOLE
     Dosage: 10 MILLIGRAM
     Route: 048
     Dates: start: 20211124, end: 20211201
  3. ARIPIPRAZOLE [Suspect]
     Active Substance: ARIPIPRAZOLE
     Dosage: 10 MILLIGRAM
     Route: 048
     Dates: start: 20211230, end: 20211230
  4. ARIPIPRAZOLE [Suspect]
     Active Substance: ARIPIPRAZOLE
     Dosage: 5 MILLIGRAM
     Route: 048
     Dates: start: 20211119, end: 20211123
  5. ARIPIPRAZOLE [Suspect]
     Active Substance: ARIPIPRAZOLE
     Dosage: 15 MILLIGRAM
     Route: 048
     Dates: start: 20211202, end: 20211229
  6. ARIPIPRAZOLE [Suspect]
     Active Substance: ARIPIPRAZOLE
     Dosage: UNK
     Route: 048
     Dates: start: 20220102
  7. RISPERDAL [Suspect]
     Active Substance: RISPERIDONE
     Indication: Bipolar I disorder
     Dosage: 3 MILLIGRAM
     Route: 048
     Dates: start: 20211214
  8. RISPERDAL [Suspect]
     Active Substance: RISPERIDONE
     Dosage: 4 MILLIGRAM
     Route: 048
     Dates: start: 20211230, end: 20220102
  9. RISPERDAL [Suspect]
     Active Substance: RISPERIDONE
     Dosage: 0.5 MILLIGRAM
     Route: 048
     Dates: start: 20211121
  10. RISPERDAL [Suspect]
     Active Substance: RISPERIDONE
     Dosage: 1.5 MILLIGRAM
     Route: 048
     Dates: start: 20211125
  11. RISPERDAL [Suspect]
     Active Substance: RISPERIDONE
     Dosage: 2.5 MILLIGRAM
     Route: 048
     Dates: start: 20211213
  12. RISPERDAL [Suspect]
     Active Substance: RISPERIDONE
     Dosage: 1 MILLIGRAM
     Route: 048
     Dates: start: 20211122
  13. RISPERDAL [Suspect]
     Active Substance: RISPERIDONE
     Dosage: 2 MILLIGRAM
     Route: 048
     Dates: start: 20211204
  14. FOSFOMYCIN [Concomitant]
     Active Substance: FOSFOMYCIN
     Indication: Urinary tract infection
     Dosage: UNK
     Route: 065
  15. LIOTHYRONINE SODIUM [Concomitant]
     Active Substance: LIOTHYRONINE SODIUM
     Indication: Hypothyroidism
     Dosage: 10
     Route: 065
  16. LEVOTHYROXINE SODIUM\LIOTHYRONINE SODIUM [Concomitant]
     Active Substance: LEVOTHYROXINE SODIUM\LIOTHYRONINE SODIUM
     Indication: Hypothyroidism
     Dosage: UNK
     Route: 065
  17. LEVOTHYROXINE SODIUM [Concomitant]
     Active Substance: LEVOTHYROXINE SODIUM
     Indication: Hypothyroidism
     Dosage: UNK, 50
     Route: 065

REACTIONS (2)
  - Vascular parkinsonism [Recovered/Resolved]
  - Dementia with Lewy bodies [Unknown]

NARRATIVE: CASE EVENT DATE: 20220103
